FAERS Safety Report 9478996 (Version 2)
Quarter: 2013Q3

REPORT INFORMATION
  Report Type: Spontaneous
  Country: US (occurrence: US)
  Receive Date: 20130827
  Receipt Date: 20130827
  Transmission Date: 20140515
  Serious: No
  Sender: FDA-Public Use
  Company Number: US-BAYER-2013-059703

PATIENT
  Sex: 0

DRUGS (1)
  1. STIVARGA [Suspect]
     Dosage: UNK
     Dates: end: 20130316

REACTIONS (2)
  - Drug ineffective [None]
  - Hospice care [None]
